FAERS Safety Report 15981339 (Version 1)
Quarter: 2019Q1

REPORT INFORMATION
  Report Type: Spontaneous
  Country: US (occurrence: US)
  Receive Date: 20190218
  Receipt Date: 20190218
  Transmission Date: 20190418
  Serious: Yes (Life-Threatening, Hospitalization)
  Sender: FDA-Public Use
  Company Number: None

PATIENT
  Age: 77 Year
  Sex: Female
  Weight: 63 kg

DRUGS (4)
  1. BACLOFEN. [Suspect]
     Active Substance: BACLOFEN
     Indication: NECK PAIN
     Dosage: ?          QUANTITY:4 TABLET(S);?
     Route: 048
     Dates: start: 20190205, end: 20190207
  2. MULTI VITAMN [Concomitant]
  3. EXCEDRIN [Concomitant]
     Active Substance: ACETAMINOPHEN\ASPIRIN\CAFFEINE
  4. ATORVASTATIN [Concomitant]
     Active Substance: ATORVASTATIN

REACTIONS (6)
  - Loss of consciousness [None]
  - Body temperature increased [None]
  - Anal incontinence [None]
  - Confusional state [None]
  - Urinary incontinence [None]
  - Blood potassium decreased [None]

NARRATIVE: CASE EVENT DATE: 20190206
